FAERS Safety Report 9109733 (Version 2)
Quarter: 2013Q1

REPORT INFORMATION
  Report Type: Spontaneous
  Country: IL (occurrence: IL)
  Receive Date: 20130222
  Receipt Date: 20130306
  Transmission Date: 20140127
  Serious: Yes (Death, Life-Threatening)
  Sender: FDA-Public Use
  Company Number: IL-NOVOPROD-371274

PATIENT
  Age: 64 Year
  Sex: Female
  Weight: 71 kg

DRUGS (15)
  1. VICTOZA [Suspect]
     Indication: TYPE 2 DIABETES MELLITUS
     Dosage: 1.8 MG, QD
     Route: 065
     Dates: start: 201103, end: 201111
  2. VICTOZA [Suspect]
     Indication: OBESITY
  3. NOVORAPID [Concomitant]
     Dosage: UNKNOWN
     Route: 058
  4. NOVORAPID [Concomitant]
     Dosage: UNKNOWN
     Route: 058
  5. LEVEMIR [Concomitant]
     Dosage: UNKNOWN
     Route: 065
  6. GLUCOPHAGE [Concomitant]
  7. FOSALAN [Concomitant]
  8. TRITACE [Concomitant]
  9. VALSARTAN [Concomitant]
  10. AMLOWEST [Concomitant]
  11. CADEX                              /00082201/ [Concomitant]
  12. ASPIRIN [Concomitant]
  13. CALCIUM [Concomitant]
  14. LIPITOR [Concomitant]
  15. BEZALIP [Concomitant]

REACTIONS (1)
  - Pancreatic carcinoma metastatic [Fatal]
